FAERS Safety Report 5670194-9 (Version None)
Quarter: 2008Q1

REPORT INFORMATION
  Report Type: 
  Country: None (occurrence: None)
  Receive Date: 20080312
  Receipt Date: 20080304
  Transmission Date: 20080703
  Serious: Yes (Death, Hospitalization)
  Sender: FDA-Public Use
  Company Number: 083-C5013-07121004

PATIENT
  Age: 80 Year
  Sex: Male
  Weight: 53 kg

DRUGS (8)
  1. CC-5013 (LENALIDOMIDE) (CAPSULES) [Suspect]
     Indication: MULTIPLE MYELOMA
     Dosage: 25 MG, DAILY, ORAL
     Route: 048
     Dates: start: 20071117, end: 20071210
  2. DILTIAZEM [Concomitant]
  3. ASPIRIN [Concomitant]
  4. OMEPRAZOLE [Concomitant]
  5. RAMIPRIL [Concomitant]
  6. TRAMADOL HCL [Concomitant]
  7. FENTANYL [Concomitant]
  8. DEXAMETHASONE TAB [Concomitant]

REACTIONS (12)
  - BLOOD CALCIUM INCREASED [None]
  - BLOOD LACTATE DEHYDROGENASE INCREASED [None]
  - BONE DISORDER [None]
  - CACHEXIA [None]
  - CARDIOMYOPATHY [None]
  - DISEASE PROGRESSION [None]
  - HAEMOGLOBIN DECREASED [None]
  - HYPOTENSION [None]
  - NEUTROPHIL COUNT INCREASED [None]
  - PLATELET COUNT DECREASED [None]
  - SHOCK [None]
  - WHITE BLOOD CELL COUNT INCREASED [None]
